FAERS Safety Report 18001385 (Version 1)
Quarter: 2020Q3

REPORT INFORMATION
  Report Type: Spontaneous
  Country: CA (occurrence: CA)
  Receive Date: 20200709
  Receipt Date: 20200709
  Transmission Date: 20201103
  Serious: Yes (Life-Threatening)
  Sender: FDA-Public Use
  Company Number: CA-TEVA-2020-CA-1797291

PATIENT
  Age: 5 Year
  Sex: Male
  Weight: 20 kg

DRUGS (41)
  1. CEFTAZIDIME. [Concomitant]
     Active Substance: CEFTAZIDIME
  2. CLONIDINE. [Concomitant]
     Active Substance: CLONIDINE
  3. DIPHENHYDRAMINE. [Concomitant]
     Active Substance: DIPHENHYDRAMINE
  4. METRONIDAZOLE. [Concomitant]
     Active Substance: METRONIDAZOLE
  5. POTASSIUM [Concomitant]
     Active Substance: POTASSIUM
  6. TOBRAMYCIN. [Concomitant]
     Active Substance: TOBRAMYCIN
  7. HYDROCORTISONE. [Suspect]
     Active Substance: HYDROCORTISONE
     Indication: BURKITT^S LYMPHOMA
     Route: 037
  8. HYDROCORTISONE. [Suspect]
     Active Substance: HYDROCORTISONE
     Route: 037
  9. CYTARABINE INJECTION [Suspect]
     Active Substance: CYTARABINE
     Indication: BURKITT^S LYMPHOMA
     Route: 042
  10. CIPROFLOXACIN. [Concomitant]
     Active Substance: CIPROFLOXACIN
  11. HEPARIN CALCIUM [Concomitant]
     Active Substance: HEPARIN CALCIUM
  12. PENTAMIDINE ISETHIONATE INJ 300MG/VIAL BP [Concomitant]
  13. ETOPOSIDE. [Suspect]
     Active Substance: ETOPOSIDE
     Route: 042
  14. FOLIC ACID. [Concomitant]
     Active Substance: FOLIC ACID
  15. MEROPENEM. [Concomitant]
     Active Substance: MEROPENEM
  16. MOXIFLOXACIN. [Concomitant]
     Active Substance: MOXIFLOXACIN
  17. VANCOMYCIN [Concomitant]
     Active Substance: VANCOMYCIN
  18. METHOTREXATE. [Suspect]
     Active Substance: METHOTREXATE
     Route: 037
  19. ACETAMINOPHEN. [Concomitant]
     Active Substance: ACETAMINOPHEN
  20. CETIRIZINE [Concomitant]
     Active Substance: CETIRIZINE HYDROCHLORIDE
  21. FLUCONAZOLE. [Concomitant]
     Active Substance: FLUCONAZOLE
  22. HYDROXYZINE [Concomitant]
     Active Substance: HYDROXYZINE HYDROCHLORIDE
  23. KETAMINE (UNKNOWN) [Concomitant]
     Active Substance: KETAMINE
  24. POLYETHYLENE GLYCOL [Concomitant]
     Active Substance: POLYETHYLENE GLYCOLS
  25. ETOPOSIDE. [Suspect]
     Active Substance: ETOPOSIDE
     Indication: BURKITT^S LYMPHOMA
     Route: 042
  26. METHOTREXATE. [Suspect]
     Active Substance: METHOTREXATE
     Route: 037
  27. RITUXAN [Suspect]
     Active Substance: RITUXIMAB
     Indication: BURKITT^S LYMPHOMA
     Route: 042
  28. RITUXAN [Suspect]
     Active Substance: RITUXIMAB
     Route: 042
  29. ONDANSETRON [Concomitant]
     Active Substance: ONDANSETRON
  30. CYTARABINE INJECTION [Suspect]
     Active Substance: CYTARABINE
     Route: 042
  31. FUROSEMIDE. [Concomitant]
     Active Substance: FUROSEMIDE
  32. MYCAMINE [Concomitant]
     Active Substance: MICAFUNGIN SODIUM
  33. RANITIDINE. [Concomitant]
     Active Substance: RANITIDINE
  34. DIMENHYDRINATE. [Concomitant]
     Active Substance: DIMENHYDRINATE
  35. EPINEPHRINE. [Concomitant]
     Active Substance: EPINEPHRINE
  36. FILGRASTIM [Concomitant]
     Active Substance: FILGRASTIM
  37. DEXAMETHASONE. [Concomitant]
     Active Substance: DEXAMETHASONE
  38. HYDROMORPHONE [Concomitant]
     Active Substance: HYDROMORPHONE
  39. METOCLOPRAMIDE. [Concomitant]
     Active Substance: METOCLOPRAMIDE
  40. PIPERACILLIN AND TAZOBACTAM [Concomitant]
     Active Substance: PIPERACILLIN SODIUM\TAZOBACTAM SODIUM
  41. SULFAMETHOXAZOLE AND TRIMETHOPRIM [Concomitant]
     Active Substance: SULFAMETHOXAZOLE\TRIMETHOPRIM

REACTIONS (3)
  - Febrile bone marrow aplasia [Unknown]
  - Transfusion [Unknown]
  - Aplastic anaemia [Unknown]
